APPROVED DRUG PRODUCT: LAMIVUDINE
Active Ingredient: LAMIVUDINE
Strength: 300MG
Dosage Form/Route: TABLET;ORAL
Application: A077221 | Product #002 | TE Code: AB
Applicant: CIPLA LTD
Approved: Mar 3, 2017 | RLD: No | RS: No | Type: RX